FAERS Safety Report 5362654-5 (Version None)
Quarter: 2007Q2

REPORT INFORMATION
  Report Type: 
  Country: None (occurrence: None)
  Receive Date: 20070614
  Receipt Date: 20070601
  Transmission Date: 20071010
  Serious: Yes (Disabling)
  Sender: FDA-Public Use
  Company Number: 2005-130482-NL

PATIENT
  Age: 18 Month
  Sex: Male

DRUGS (16)
  1. PANCURONIUM [Suspect]
     Indication: MECHANICAL VENTILATION
     Dosage: SEE IMAGE
     Route: 041
     Dates: start: 20020520, end: 20020520
  2. PANCURONIUM [Suspect]
     Indication: MECHANICAL VENTILATION
     Dosage: SEE IMAGE
     Route: 041
     Dates: start: 20020521, end: 20020527
  3. MENATETRENONE [Concomitant]
  4. CARBAZOCHROME SODIUM SULFONATE [Concomitant]
  5. TRANEXAMIC ACID [Concomitant]
  6. CALCIUM GLUCONATE [Concomitant]
  7. DEXAMETHASONE 0.5MG TAB [Concomitant]
  8. CEFMETAZOLE SODIUM [Concomitant]
  9. ULINASTATIN [Concomitant]
  10. DOBUTAMINE HYDROCHLORIDE [Concomitant]
  11. FENTANYL CITRATE [Concomitant]
  12. DOPAMINE HCL [Concomitant]
  13. GLYCERYL TRINITRATE [Concomitant]
  14. ALPROSTADIL [Concomitant]
  15. CHLORPROMAZINE HCL [Concomitant]
  16. NITRIC OXIDE [Concomitant]

REACTIONS (4)
  - DEAFNESS NEUROSENSORY [None]
  - GASTROOESOPHAGEAL REFLUX DISEASE [None]
  - HEARING AID USER [None]
  - SPEECH DISORDER DEVELOPMENTAL [None]
